FAERS Safety Report 8887375 (Version 2)
Quarter: 2013Q3

REPORT INFORMATION
  Report Type: Spontaneous
  Country: US (occurrence: US)
  Receive Date: 20121101
  Receipt Date: 20130708
  Transmission Date: 20140515
  Serious: Yes (Hospitalization, Other)
  Sender: FDA-Public Use
  Company Number: US-PFIZER INC-2012272110

PATIENT
  Age: 34 Year
  Sex: Female
  Weight: 103 kg

DRUGS (3)
  1. LYRICA [Suspect]
     Indication: NEUROPATHY PERIPHERAL
     Dosage: 200 MG, 3X/DAY
  2. LYRICA [Suspect]
     Indication: FIBROMYALGIA
  3. METFORMIN [Concomitant]
     Indication: TYPE 2 DIABETES MELLITUS
     Dosage: 1000 MG, 2X/DAY

REACTIONS (3)
  - Localised infection [Unknown]
  - Limb injury [Unknown]
  - Malaise [Unknown]
